FAERS Safety Report 10616941 (Version 3)
Quarter: 2015Q1

REPORT INFORMATION
  Report Type: Spontaneous
  Country: US (occurrence: US)
  Receive Date: 20141201
  Receipt Date: 20150130
  Transmission Date: 20150720
  Serious: No
  Sender: FDA-Public Use
  Company Number: US-GLAXOSMITHKLINE-US2014GSK025256

PATIENT
  Sex: Female

DRUGS (7)
  1. SEREVENT DISKUS [Concomitant]
     Active Substance: SALMETEROL XINAFOATE
  2. XYZAL [Concomitant]
     Active Substance: LEVOCETIRIZINE DIHYDROCHLORIDE
  3. THYROID MEDICATION [Concomitant]
     Active Substance: UNSPECIFIED INGREDIENT
  4. MEDICATION UNKNOWN [Concomitant]
     Active Substance: UNSPECIFIED INGREDIENT
  5. FLOVENT [Suspect]
     Active Substance: FLUTICASONE PROPIONATE
     Indication: ASTHMA
     Dosage: 2 DF, BID
  6. SUDAFED [Concomitant]
     Active Substance: PSEUDOEPHEDRINE HYDROCHLORIDE
  7. OMNARIS [Concomitant]
     Active Substance: CICLESONIDE

REACTIONS (3)
  - Therapeutic response decreased [Unknown]
  - Extra dose administered [Unknown]
  - Product quality issue [Unknown]
